FAERS Safety Report 6416052-3 (Version None)
Quarter: 2009Q4

REPORT INFORMATION
  Report Type: 
  Country: None (occurrence: None)
  Receive Date: 20091027
  Receipt Date: 20091014
  Transmission Date: 20100525
  Serious: Yes (Other)
  Sender: FDA-Public Use
  Company Number: ES-ELI_LILLY_AND_COMPANY-ES200910003768

PATIENT
  Age: 81 Year
  Sex: Female

DRUGS (2)
  1. PROZAC [Suspect]
     Indication: DEPRESSION
     Dosage: 20 MG, UNK
     Route: 048
     Dates: start: 20081228, end: 20090407
  2. DEPRAX [Concomitant]
     Dosage: 25 MG, UNK
     Route: 048
     Dates: start: 20060101, end: 20090407

REACTIONS (3)
  - AGITATION [None]
  - ANXIETY [None]
  - HALLUCINATION [None]
